FAERS Safety Report 7134601-7 (Version None)
Quarter: 2010Q4

REPORT INFORMATION
  Report Type: 
  Country: None (occurrence: None)
  Receive Date: 20101130
  Receipt Date: 20101130
  Transmission Date: 20110411
  Serious: Yes (Hospitalization)
  Sender: FDA-Public Use
  Company Number: None

PATIENT
  Sex: Female

DRUGS (2)
  1. METHIMAZOLE [Suspect]
     Indication: ARTHRALGIA
  2. METHIMAZOLE [Suspect]
     Indication: RASH

REACTIONS (1)
  - SYSTEMIC LUPUS ERYTHEMATOSUS [None]
